FAERS Safety Report 7205079-X (Version None)
Quarter: 2010Q4

REPORT INFORMATION
  Report Type: 
  Country: None (occurrence: None)
  Receive Date: 20101230
  Receipt Date: 20101222
  Transmission Date: 20110411
  Serious: Yes (Hospitalization)
  Sender: FDA-Public Use
  Company Number: US-AMGEN-USASP2010007820

PATIENT

DRUGS (2)
  1. ENBREL [Suspect]
     Indication: ANKYLOSING SPONDYLITIS
     Dosage: 50 MG, QWK
     Dates: start: 20060914
  2. ENBREL [Suspect]
     Dosage: 50 MG, QWK
     Dates: start: 20061007

REACTIONS (3)
  - ANKYLOSING SPONDYLITIS [None]
  - PROCEDURAL PAIN [None]
  - SURGERY [None]
